FAERS Safety Report 5991242-2 (Version None)
Quarter: 2008Q4

REPORT INFORMATION
  Report Type: 
  Country: None (occurrence: None)
  Receive Date: 20081211
  Receipt Date: 20081118
  Transmission Date: 20090506
  Serious: No
  Sender: FDA-Public Use
  Company Number: US-JNJFOC-20081104773

PATIENT
  Sex: Male
  Weight: 95.26 kg

DRUGS (4)
  1. INVEGA [Suspect]
     Indication: PARANOIA
     Route: 048
  2. LACMICTAL [Concomitant]
     Indication: DRUG USE FOR UNKNOWN INDICATION
     Route: 048
  3. LYRICA [Concomitant]
     Indication: OBSESSIVE-COMPULSIVE DISORDER
     Route: 048
  4. HYDROXYZINE [Concomitant]
     Indication: ANGER
     Route: 048

REACTIONS (2)
  - MEDICATION RESIDUE [None]
  - THERAPEUTIC RESPONSE DECREASED [None]
